FAERS Safety Report 7770918-0 (Version None)
Quarter: 2011Q3

REPORT INFORMATION
  Report Type: 
  Country: None (occurrence: None)
  Receive Date: 20110922
  Receipt Date: 20100923
  Transmission Date: 20111222
  Serious: No
  Sender: FDA-Public Use
  Company Number: US-ASTRAZENECA-2010SE44983

PATIENT
  Age: 25 Year
  Sex: Male

DRUGS (3)
  1. CLONAZEPAM [Concomitant]
     Route: 065
  2. SOMA [Concomitant]
     Route: 065
  3. SEROQUEL [Suspect]
     Indication: BIPOLAR I DISORDER
     Route: 048
     Dates: start: 20080101

REACTIONS (5)
  - SLEEP TERROR [None]
  - DRUG INEFFECTIVE [None]
  - DEPRESSION [None]
  - ANXIETY [None]
  - TREMOR [None]
